FAERS Safety Report 7599542-X (Version None)
Quarter: 2011Q3

REPORT INFORMATION
  Report Type: 
  Country: None (occurrence: None)
  Receive Date: 20110711
  Receipt Date: 20110630
  Transmission Date: 20111222
  Serious: Yes (Hospitalization, Other)
  Sender: FDA-Public Use
  Company Number: JP-BRISTOL-MYERS SQUIBB COMPANY-15849516

PATIENT
  Age: 69 Year
  Sex: Male

DRUGS (2)
  1. METFORMIN HCL [Suspect]
     Indication: HYPERGLYCAEMIA
     Route: 048
     Dates: start: 20110525, end: 20110610
  2. MICARDIS [Concomitant]
     Indication: HYPERTENSION
     Route: 048
     Dates: start: 20110225

REACTIONS (3)
  - PANCREATIC NEOPLASM [None]
  - JAUNDICE [None]
  - LIVER DISORDER [None]
